FAERS Safety Report 8049232-4 (Version None)
Quarter: 2012Q1

REPORT INFORMATION
  Report Type: 
  Country: None (occurrence: None)
  Receive Date: 20120117
  Receipt Date: 20120112
  Transmission Date: 20120608
  Serious: Yes (Hospitalization)
  Sender: FDA-Public Use
  Company Number: US-ROCHE-1030166

PATIENT

DRUGS (2)
  1. NUTROPIN AQ [Suspect]
     Indication: PRODUCT USED FOR UNKNOWN INDICATION
     Dosage: DAILY
     Route: 058
     Dates: end: 20120110
  2. NUTROPIN AQ [Suspect]
     Dosage: DAILY
     Route: 058
     Dates: start: 20120112

REACTIONS (1)
  - CONVULSION [None]
